FAERS Safety Report 16305176 (Version 1)
Quarter: 2019Q2

REPORT INFORMATION
  Report Type: Spontaneous
  Country: BE (occurrence: BE)
  Receive Date: 20190513
  Receipt Date: 20190513
  Transmission Date: 20190711
  Serious: Yes (Other)
  Sender: FDA-Public Use
  Company Number: BE-MYLANLABS-2019M1044115

PATIENT
  Age: 52 Year
  Sex: Female

DRUGS (1)
  1. ZOLPIDEM [Suspect]
     Active Substance: ZOLPIDEM\ZOLPIDEM TARTRATE
     Indication: INSOMNIA
     Dosage: 1 DOSAGE FORM, QD
     Route: 048

REACTIONS (6)
  - Suicidal ideation [Recovered/Resolved]
  - Crying [Unknown]
  - Anger [Unknown]
  - Tachycardia [Unknown]
  - Mood altered [Unknown]
  - Product use issue [Unknown]
